FAERS Safety Report 8452769-7 (Version None)
Quarter: 2012Q2

REPORT INFORMATION
  Report Type: 
  Country: None (occurrence: None)
  Receive Date: 20120620
  Receipt Date: 20120515
  Transmission Date: 20120825
  Serious: No
  Sender: FDA-Public Use
  Company Number: US-VERTEX PHARMACEUTICALS INC.-AE-2012-005959

PATIENT
  Sex: Female
  Weight: 94.432 kg

DRUGS (18)
  1. ZOLOFT [Concomitant]
     Route: 048
  2. RISPEDAL [Concomitant]
     Route: 048
  3. XANAX [Concomitant]
     Route: 048
  4. ASCORBIC ACID [Concomitant]
  5. LISINOPRIL [Concomitant]
     Route: 048
  6. INCIVEK [Suspect]
     Indication: HEPATITIS C
     Route: 048
     Dates: start: 20120413
  7. PEGASYS [Concomitant]
     Indication: HEPATITIS C
     Route: 058
     Dates: start: 20120413
  8. METOPROLOL SUCCINATE [Concomitant]
     Indication: BLOOD PRESSURE
     Route: 048
  9. TRAZODONE HCL [Concomitant]
     Route: 048
  10. GENERIC STOOL SOFTENER [Concomitant]
  11. RIBAVIRIN [Concomitant]
     Indication: HEPATITIS C
     Route: 048
     Dates: start: 20120413
  12. GLUCATROL [Concomitant]
     Route: 048
  13. PRILOSEC [Concomitant]
     Route: 048
  14. LYRICA [Concomitant]
     Route: 048
  15. PROAIR HFA [Concomitant]
     Indication: ASTHMA
  16. COMBIVENT [Concomitant]
     Indication: ASTHMA
  17. ZOCOR [Concomitant]
     Route: 048
  18. ASPIRIN [Concomitant]
     Route: 048

REACTIONS (8)
  - FATIGUE [None]
  - OROPHARYNGEAL PAIN [None]
  - NASAL CONGESTION [None]
  - BLISTER [None]
  - TONGUE DISCOLOURATION [None]
  - DRUG DOSE OMISSION [None]
  - INFLUENZA LIKE ILLNESS [None]
  - CHEILITIS [None]
